FAERS Safety Report 8356580 (Version 3)
Quarter: 2013Q1

REPORT INFORMATION
  Report Type: Spontaneous
  Country: IE (occurrence: IE)
  Receive Date: 20120126
  Receipt Date: 20130122
  Transmission Date: 20140127
  Serious: Yes (Death)
  Sender: FDA-Public Use
  Company Number: IE-MEDIMMUNE-MEDI-0014629

PATIENT
  Sex: Female

DRUGS (7)
  1. SYNAGIS [Suspect]
     Indication: METABOLIC DISORDER
     Route: 030
     Dates: start: 20111101, end: 20111101
  2. AMEND [Concomitant]
  3. BUCCAL MIDAZOLAM [Concomitant]
     Route: 002
  4. ONDANSETRON HYDROCHLORIDE [Concomitant]
  5. LOSEC [Concomitant]
  6. ORAMORPH [Concomitant]
  7. CHLORAL HYDRATE [Concomitant]

REACTIONS (3)
  - Autosomal chromosome anomaly [Fatal]
  - Pyrexia [Fatal]
  - Terminal state [Fatal]
